FAERS Safety Report 8975274 (Version 2)
Quarter: 2012Q4

REPORT INFORMATION
  Report Type: 
  Country: JP (occurrence: JP)
  Receive Date: 20121220
  Receipt Date: 20121231
  Transmission Date: 20130627
  Serious: Yes (Death, Other)
  Sender: FDA-Public Use
  Company Number: PHHY2012JP117076

PATIENT
  Age: 69 Year
  Sex: Female
  Weight: 60 kg

DRUGS (1)
  1. CARBAMAZEPINE [Suspect]

REACTIONS (7)
  - Acute myocardial infarction [Fatal]
  - Cardiac failure acute [Fatal]
  - Neuroleptic malignant syndrome [Unknown]
  - Tachycardia [None]
  - Altered state of consciousness [Unknown]
  - Blood creatine phosphokinase increased [Unknown]
  - Pyrexia [Unknown]
